FAERS Safety Report 8577728 (Version 9)
Quarter: 2013Q1

REPORT INFORMATION
  Report Type: Spontaneous
  Country: IE (occurrence: IE)
  Receive Date: 20120524
  Receipt Date: 20130326
  Transmission Date: 20140127
  Serious: Yes (Hospitalization, Other)
  Sender: FDA-Public Use
  Company Number: PHFR2012IE002631

PATIENT
  Age: 45 Year
  Sex: Male
  Weight: 91 kg

DRUGS (12)
  1. CLOZARIL [Suspect]
     Indication: SCHIZOAFFECTIVE DISORDER BIPOLAR TYPE
     Dosage: 375 MG, DAILY
     Route: 048
     Dates: start: 20100811
  2. CLOZARIL [Suspect]
     Dosage: 250 MG, DAILY
     Route: 048
     Dates: start: 20121003
  3. VALPROATE SODIUM [Concomitant]
     Indication: AFFECTIVE DISORDER
     Dosage: 1400 MG, QD
     Route: 048
  4. VALPROATE SODIUM [Concomitant]
     Dosage: 700 MG, BID
     Route: 048
     Dates: start: 20120719
  5. ESCITALOPRAM [Concomitant]
     Dosage: 30 MG, QD
     Route: 048
  6. ESCITALOPRAM [Concomitant]
     Dosage: 20 MG, OD
     Route: 048
     Dates: start: 20121013
  7. OMACOR [Concomitant]
     Indication: HYPERCHOLESTEROLAEMIA
     Dosage: 100 MG, UNK
     Route: 048
     Dates: start: 20120714
  8. SPIRIVA [Concomitant]
     Indication: CHRONIC OBSTRUCTIVE PULMONARY DISEASE
     Dosage: 1 DF, QD
     Dates: start: 20120714
  9. SENNA [Concomitant]
     Indication: CONSTIPATION
     Dosage: 2 DF, QD
     Route: 048
     Dates: start: 20120919
  10. SERETIDE DISKUS [Concomitant]
     Indication: ASTHMA
     Dosage: BID
     Dates: start: 20120714
  11. PROPRANOLOL [Concomitant]
     Indication: HYPERTENSION
     Dosage: 10 MG, TDS
     Route: 048
     Dates: start: 20120719
  12. FOSAMAX [Concomitant]
     Indication: OSTEOPOROSIS
     Dosage: 70 MG, (ONCE WEEKLY)
     Route: 048
     Dates: start: 20120714

REACTIONS (9)
  - Empyema [Unknown]
  - Pleural effusion [Recovered/Resolved]
  - Antipsychotic drug level increased [Recovered/Resolved]
  - Lower respiratory tract infection [Recovered/Resolved]
  - Differential white blood cell count abnormal [Recovered/Resolved]
  - White blood cell count increased [Unknown]
  - Neutrophil count increased [Unknown]
  - Tachycardia [Unknown]
  - Platelet count increased [Unknown]
